FAERS Safety Report 6617550-X (Version None)
Quarter: 2010Q1

REPORT INFORMATION
  Report Type: 
  Country: None (occurrence: None)
  Receive Date: 20100308
  Receipt Date: 20100223
  Transmission Date: 20100710
  Serious: Yes (Hospitalization)
  Sender: FDA-Public Use
  Company Number: JP-NOVOPROD-304782

PATIENT
  Age: 75 Year
  Sex: Female
  Weight: 45 kg

DRUGS (23)
  1. NOVORAPID CHU PENFILL [Suspect]
     Indication: TYPE 2 DIABETES MELLITUS
     Dosage: 4+4+6+0 IU
     Route: 058
     Dates: start: 20090412
  2. NOVORAPID CHU PENFILL [Suspect]
     Dosage: 30+24+24+0 IU
  3. NOVORAPID CHU PENFILL [Suspect]
     Dosage: 16+6+10+0 IU
  4. NOVORAPID CHU PENFILL [Suspect]
     Dosage: 6 IU, TID
  5. NOVORAPID CHU PENFILL [Suspect]
     Dosage: 4+0+6 IU
  6. NOVOLIN N [Suspect]
     Indication: TYPE 2 DIABETES MELLITUS
     Dosage: 38 IU, QD
     Route: 058
  7. NOVOLIN N [Suspect]
     Dosage: 37 IU, UNK
  8. HUMULIN R [Concomitant]
     Dosage: /IV
     Route: 042
     Dates: start: 20090410, end: 20090423
  9. LANTUS [Concomitant]
     Dosage: /SC
     Route: 058
     Dates: start: 20090423
  10. LANTUS [Concomitant]
     Dosage: 20 IU, QD
  11. CEFAPICOL CHEMIPHAR [Concomitant]
     Dosage: 2G / IV.
     Route: 042
     Dates: start: 20090419, end: 20090430
  12. ALBUMINAR                          /01102501/ [Concomitant]
     Dosage: 100 ML, QD
     Route: 042
     Dates: start: 20090411, end: 20090413
  13. PANABATE [Concomitant]
     Dosage: 1000 MG, QD
     Route: 042
     Dates: start: 20090411, end: 20090417
  14. OMEGACIN [Concomitant]
     Dosage: 0.3-0.6 G I.V
     Route: 042
     Dates: start: 20090410, end: 20090418
  15. OMEPRAL                            /00661201/ [Concomitant]
     Dosage: 40 MG, QD
     Route: 042
     Dates: start: 20090410, end: 20090411
  16. GASTER                             /00661201/ [Concomitant]
     Dosage: 40 MG, QD
     Route: 042
     Dates: start: 20090412, end: 20090415
  17. FAMOTIDINE [Concomitant]
     Dosage: 20 MG, QD
     Route: 048
     Dates: start: 20090416, end: 20090421
  18. DIOVAN [Concomitant]
     Dosage: 40-80MG/PO
     Route: 048
     Dates: start: 20090416
  19. NORVASC [Concomitant]
     Dosage: 2.5 MG, QD
     Route: 048
     Dates: start: 20090426
  20. ASPIRIN [Concomitant]
     Dosage: 100 MG, QD
     Route: 048
     Dates: start: 20090502
  21. MAGMITT [Concomitant]
     Dosage: 29.7 G, QD
     Route: 048
     Dates: start: 20090425
  22. SAWACILLIN [Concomitant]
     Dosage: 22.5 G, QD
     Route: 048
     Dates: start: 20090508, end: 20090513
  23. AMARYL [Concomitant]
     Dosage: 1 MG, QD

REACTIONS (3)
  - ANTI-INSULIN ANTIBODY [None]
  - BLOOD GLUCOSE INCREASED [None]
  - HYPOGLYCAEMIA [None]
